FAERS Safety Report 7521938-2 (Version None)
Quarter: 2011Q2

REPORT INFORMATION
  Report Type: 
  Country: None (occurrence: None)
  Receive Date: 20110603
  Receipt Date: 20110520
  Transmission Date: 20111010
  Serious: Yes (Other)
  Sender: FDA-Public Use
  Company Number: DE-ELI_LILLY_AND_COMPANY-DE201103004377

PATIENT
  Age: 72 Year
  Sex: Female

DRUGS (2)
  1. FORTEO [Suspect]
     Indication: OSTEOPOROSIS
     Dosage: UNK, QD
     Route: 058
     Dates: start: 20110217
  2. FORTEO [Suspect]
     Dosage: UNK, QD
     Route: 058
     Dates: start: 20110409

REACTIONS (12)
  - DIZZINESS [None]
  - HEADACHE [None]
  - HYPOTENSION [None]
  - ERYTHEMA [None]
  - GASTROINTESTINAL DISORDER [None]
  - GENERAL SYMPTOM [None]
  - ACNE [None]
  - HYPERTENSION [None]
  - BACK PAIN [None]
  - ANGINA PECTORIS [None]
  - FATIGUE [None]
  - NAUSEA [None]
